FAERS Safety Report 11369007 (Version 4)
Quarter: 2016Q2

REPORT INFORMATION
  Report Type: Report from Study
  Country: VE (occurrence: VE)
  Receive Date: 20150812
  Receipt Date: 20160408
  Transmission Date: 20160815
  Serious: Yes (Other)
  Sender: FDA-Public Use
  Company Number: PHHY2015VE079145

PATIENT
  Age: 21 Year
  Sex: Female

DRUGS (4)
  1. ESOMEPRAZOLE [Concomitant]
     Active Substance: ESOMEPRAZOLE
     Indication: PROPHYLAXIS
     Dosage: 40 MG, QD
     Route: 065
  2. TASIGNA [Suspect]
     Active Substance: NILOTINIB
     Indication: CHRONIC MYELOID LEUKAEMIA
     Dosage: 400 MG (200 MG, BID)
     Route: 048
     Dates: start: 20141202
  3. TASIGNA [Suspect]
     Active Substance: NILOTINIB
     Dosage: 800 MG (400 MG IN THE MORNING AND 400 MG AT NIGHT), QD
     Route: 048
     Dates: start: 201509
  4. TASIGNA [Suspect]
     Active Substance: NILOTINIB
     Dosage: 600 MG, QD (400 MG IN THE MORNING AND 200 MG AT NIGHT)
     Route: 048
     Dates: start: 20150127, end: 201509

REACTIONS (10)
  - Chronic myeloid leukaemia recurrent [Unknown]
  - Immune system disorder [Recovering/Resolving]
  - Rhinitis [Not Recovered/Not Resolved]
  - Haemoglobin decreased [Recovering/Resolving]
  - Cytogenetic analysis abnormal [Unknown]
  - Therapeutic response decreased [Recovered/Resolved]
  - Hypersensitivity [Recovering/Resolving]
  - Drug prescribing error [Unknown]
  - Rash generalised [Not Recovered/Not Resolved]
  - Chikungunya virus infection [Unknown]

NARRATIVE: CASE EVENT DATE: 201501
